FAERS Safety Report 6663310-3 (Version None)
Quarter: 2010Q2

REPORT INFORMATION
  Report Type: 
  Country: None (occurrence: None)
  Receive Date: 20100401
  Receipt Date: 20100317
  Transmission Date: 20101027
  Serious: Yes (Death, Hospitalization, Other)
  Sender: FDA-Public Use
  Company Number: NL-BAYER-201020088GPV

PATIENT
  Age: 75 Year
  Sex: Male

DRUGS (2)
  1. FLUDARABINE PHOSPHATE [Suspect]
     Indication: CHRONIC LYMPHOCYTIC LEUKAEMIA
     Dosage: 4 CYCLES
  2. CYCLOPHOSPHAMIDE [Concomitant]
     Indication: CHRONIC LYMPHOCYTIC LEUKAEMIA
     Dosage: 4 CYCLES

REACTIONS (3)
  - CHRONIC LYMPHOCYTIC LEUKAEMIA TRANSFORMATION [None]
  - EPSTEIN-BARR VIRUS INFECTION [None]
  - HISTIOCYTOSIS HAEMATOPHAGIC [None]
